FAERS Safety Report 4441344-7 (Version None)
Quarter: 2004Q3

REPORT INFORMATION
  Report Type: 
  Country: None (occurrence: None)
  Receive Date: 20040728
  Receipt Date: 20040325
  Transmission Date: 20050211
  Serious: No
  Sender: FDA-Public Use
  Company Number: USA040363192

PATIENT
  Age: 16 Year
  Sex: Male
  Weight: 68 kg

DRUGS (2)
  1. STRATTERA [Suspect]
     Dosage: 80 MG DAY
     Dates: start: 20031101
  2. DOXYCYCLINE [Concomitant]

REACTIONS (1)
  - URINARY RETENTION [None]
